FAERS Safety Report 8717411 (Version 2)
Quarter: 2013Q4

REPORT INFORMATION
  Report Type: Spontaneous
  Country: US (occurrence: US)
  Receive Date: 20120810
  Receipt Date: 20131212
  Transmission Date: 20140711
  Serious: Yes (Other)
  Sender: FDA-Public Use
  Company Number: US-BAYER-2012-078597

PATIENT
  Age: 30 Year
  Sex: Female

DRUGS (6)
  1. YAZ [Suspect]
     Dosage: UNK
     Dates: start: 200710, end: 200910
  2. TYLENOL WITH CODEINE [Concomitant]
     Dosage: UNK UNK, PRN
  3. ARTHROTEC [DICLOFENAC SODIUM] [Concomitant]
     Dosage: 75 MG, UNK
  4. CARISOPRODOL [Concomitant]
     Dosage: 250 MG, UNK
  5. FLUCONAZOLE [Concomitant]
     Dosage: 150 MG, UNK
  6. HYDROCODONE W/APAP [Concomitant]
     Dosage: 5/500 MG

REACTIONS (2)
  - Cholecystitis chronic [None]
  - Gallbladder disorder [None]
